FAERS Safety Report 6992034-8 (Version None)
Quarter: 2010Q3

REPORT INFORMATION
  Report Type: 
  Country: None (occurrence: None)
  Receive Date: 20100917
  Receipt Date: 20100908
  Transmission Date: 20110219
  Serious: Yes (Other)
  Sender: FDA-Public Use
  Company Number: US-PFIZER INC-2010114358

PATIENT
  Sex: Male
  Weight: 133.8 kg

DRUGS (8)
  1. LIPITOR [Suspect]
     Indication: BLOOD CHOLESTEROL INCREASED
     Dosage: 20 MG, DAILY
     Route: 048
     Dates: start: 20080101
  2. GLIPIZIDE [Concomitant]
     Dosage: 5 MG, UNK
  3. NEXIUM [Concomitant]
     Dosage: 40 MG, UNK
  4. VICODIN ES [Concomitant]
     Dosage: UNK
  5. LEXAPRO [Concomitant]
     Dosage: 20 MG, UNK
  6. ZESTORETIC [Concomitant]
     Dosage: 20/25 MG, UNK
  7. ACETYLSALICYLIC ACID [Concomitant]
     Dosage: 20 MG, UNK
  8. DESYREL [Concomitant]
     Dosage: 100 MG, UNK

REACTIONS (1)
  - AORTIC VALVE DISEASE [None]
